FAERS Safety Report 6544185-X (Version None)
Quarter: 2010Q1

REPORT INFORMATION
  Report Type: 
  Country: None (occurrence: None)
  Receive Date: 20100119
  Receipt Date: 20100119
  Transmission Date: 20100710
  Serious: No
  Sender: FDA-Public Use
  Company Number: None

PATIENT
  Sex: Female
  Weight: 72.1219 kg

DRUGS (1)
  1. TYLENOL [Suspect]
     Indication: BACK PAIN
     Dates: start: 20091101, end: 20100111

REACTIONS (3)
  - ABDOMINAL PAIN UPPER [None]
  - DRUG INEFFECTIVE [None]
  - PRODUCT QUALITY ISSUE [None]
